FAERS Safety Report 9436454 (Version 1)
Quarter: 2013Q3

REPORT INFORMATION
  Report Type: Spontaneous
  Country: US (occurrence: US)
  Receive Date: 20130802
  Receipt Date: 20130802
  Transmission Date: 20140515
  Serious: No
  Sender: FDA-Public Use
  Company Number: US-009507513-1307USA011452

PATIENT
  Sex: Female
  Weight: 91.61 kg

DRUGS (7)
  1. PEGINTRON [Suspect]
     Dosage: REDIPEN, 150 MICROGRAM, ONCE PER WEEK
     Route: 058
  2. VICTRELIS [Suspect]
     Dosage: 800 MG, THREE TIMES A DAY, START ON WEEK 5
     Route: 048
  3. RIBAVIRIN [Suspect]
     Route: 048
  4. PEGINTRON [Suspect]
     Dosage: KIT
  5. METOPROLOL [Concomitant]
  6. ASPIRIN [Concomitant]
  7. HYDROCHLOROT [Concomitant]

REACTIONS (3)
  - Fatigue [Unknown]
  - Nausea [Unknown]
  - Decreased appetite [Unknown]
